FAERS Safety Report 13422956 (Version 1)
Quarter: 2017Q2

REPORT INFORMATION
  Report Type: Spontaneous
  Country: US (occurrence: US)
  Receive Date: 20170410
  Receipt Date: 20170410
  Transmission Date: 20170830
  Serious: Yes (Other)
  Sender: FDA-Public Use
  Company Number: US-DUCHESNAY INC.-1065199

PATIENT
  Age: 66 Year
  Sex: Female

DRUGS (4)
  1. IBANDRONATE SODIUM. [Concomitant]
     Active Substance: IBANDRONATE SODIUM
  2. AMLODIPINE [Concomitant]
     Active Substance: AMLODIPINE BESYLATE
  3. OSPHENA [Suspect]
     Active Substance: OSPEMIFENE
     Indication: DYSPAREUNIA
     Route: 048
     Dates: start: 201512, end: 20170125
  4. PRAVASTATIN. [Concomitant]
     Active Substance: PRAVASTATIN

REACTIONS (3)
  - Muscle spasms [Recovered/Resolved]
  - Endometrial thickening [Recovered/Resolved]
  - Uterine haemorrhage [Recovered/Resolved]

NARRATIVE: CASE EVENT DATE: 201606
